FAERS Safety Report 17964195 (Version 1)
Quarter: 2020Q2

REPORT INFORMATION
  Report Type: Spontaneous
  Country: IQ (occurrence: IQ)
  Receive Date: 20200630
  Receipt Date: 20200630
  Transmission Date: 20200714
  Serious: Yes (Other)
  Sender: FDA-Public Use
  Company Number: IQ-BAYER-2020-123593

PATIENT
  Age: 25 Year
  Sex: Female

DRUGS (4)
  1. SALINE-TROSE [Concomitant]
     Route: 042
  2. PARACETAMOL [Concomitant]
     Active Substance: ACETAMINOPHEN
     Dosage: PARACETAMOL INFUSION 1% W/V, 1 000 MG/100 ML INFUSION)
     Route: 051
  3. SALBUTAMOL [Concomitant]
     Active Substance: ALBUTEROL
     Dosage: 2 MG
     Route: 048
  4. CHLOROQUINE. [Suspect]
     Active Substance: CHLOROQUINE
     Indication: COVID-19 PNEUMONIA
     Dosage: 200 MG, BID
     Route: 048
     Dates: start: 202003

REACTIONS (4)
  - Premature delivery [None]
  - Exposure during pregnancy [None]
  - Product use in unapproved indication [None]
  - Off label use [None]

NARRATIVE: CASE EVENT DATE: 202003
